FAERS Safety Report 9954404 (Version 2)
Quarter: 2014Q1

REPORT INFORMATION
  Report Type: Report from Study
  Country: TH (occurrence: TH)
  Receive Date: 20140304
  Receipt Date: 20140304
  Transmission Date: 20141002
  Serious: Yes (Life-Threatening, Hospitalization)
  Sender: FDA-Public Use
  Company Number: PHHO2010TH13480

PATIENT
  Sex: 0

DRUGS (6)
  1. EVEROLIMUS [Suspect]
     Indication: HEPATOCELLULAR CARCINOMA
     Dosage: 7.5 MG, QD
     Route: 048
     Dates: start: 20100729, end: 20100905
  2. EVEROLIMUS [Suspect]
     Dosage: 7.5 MG, QD
     Route: 048
     Dates: start: 20100930, end: 20101001
  3. EVEROLIMUS [Suspect]
     Dosage: 7.5 MG, QD
     Route: 048
     Dates: start: 20101002, end: 20101017
  4. EVEROLIMUS [Suspect]
     Dosage: 7.5 MG, QD
     Route: 048
     Dates: start: 20101019, end: 20101020
  5. EVEROLIMUS [Suspect]
     Dosage: 7.5 MG, QD
     Route: 048
     Dates: start: 20101029, end: 20101117
  6. EVEROLIMUS [Suspect]
     Dosage: 7.5 MG, QD
     Route: 048
     Dates: start: 20101125, end: 20110508

REACTIONS (5)
  - Upper gastrointestinal haemorrhage [Recovering/Resolving]
  - Melaena [Recovering/Resolving]
  - Gastric ulcer [Recovered/Resolved]
  - Gastritis [Recovered/Resolved]
  - Stomatitis [Recovered/Resolved]
